FAERS Safety Report 21697415 (Version 2)
Quarter: 2022Q4

REPORT INFORMATION
  Report Type: Spontaneous
  Country: AR (occurrence: AR)
  Receive Date: 20221208
  Receipt Date: 20221212
  Transmission Date: 20230113
  Serious: Yes (Hospitalization, Other)
  Sender: FDA-Public Use
  Company Number: AR-PINT-2022-Neratinib-039

PATIENT

DRUGS (3)
  1. NERLYNX [Suspect]
     Active Substance: NERATINIB
     Indication: HER2 positive breast cancer
     Dosage: ONGOINGTHE PATIENT HAD TO INTERRUPT THE MEDICATION FOR 3 DAYS, SINCE TUESDAY 01
     Route: 048
     Dates: start: 20220406, end: 20221031
  2. NERLYNX [Suspect]
     Active Substance: NERATINIB
     Dosage: ONGOINGTHE PATIENT HAD TO INTERRUPT THE MEDICATION FOR 3 DAYS, SINCE TUESDAY 01
     Route: 048
     Dates: start: 20221105
  3. LOPERAMIDE [Concomitant]
     Active Substance: LOPERAMIDE
     Indication: Prophylaxis against diarrhoea
     Dosage: LOPERAMIDE (AS NEEDED): 1-2 PER DAY, SOMETIMES 3 PER DAY, SOMETIMES WITHOUT TAKING ANYTHING ()
     Route: 048

REACTIONS (17)
  - Diarrhoea [Not Recovered/Not Resolved]
  - Malaise [Unknown]
  - Abdominal pain [Not Recovered/Not Resolved]
  - Migraine [Unknown]
  - Appendicitis [Recovering/Resolving]
  - Discomfort [Unknown]
  - Vomiting [Recovered/Resolved]
  - COVID-19 [Unknown]
  - Nasal congestion [Unknown]
  - Fatigue [Unknown]
  - Limb discomfort [Recovered/Resolved]
  - Sensory loss [Unknown]
  - Pain in extremity [Unknown]
  - Skin haemorrhage [Unknown]
  - Abdominal pain upper [Unknown]
  - Abdominal distension [Recovering/Resolving]
  - Diarrhoea [Not Recovered/Not Resolved]

NARRATIVE: CASE EVENT DATE: 20220409
